FAERS Safety Report 8602840-1 (Version None)
Quarter: 2012Q3

REPORT INFORMATION
  Report Type: 
  Country: None (occurrence: None)
  Receive Date: 20120817
  Receipt Date: 20120810
  Transmission Date: 20120928
  Serious: Yes (Hospitalization, Other)
  Sender: FDA-Public Use
  Company Number: US-GLAXOSMITHKLINE-A0958483A

PATIENT
  Sex: Female

DRUGS (3)
  1. VENTOLIN HFA [Suspect]
     Indication: CHRONIC OBSTRUCTIVE PULMONARY DISEASE
     Route: 055
  2. FLUTICASONE PROPIONATE [Suspect]
     Indication: CHRONIC OBSTRUCTIVE PULMONARY DISEASE
     Route: 055
  3. BI-PAP [Suspect]

REACTIONS (9)
  - RESPIRATORY DISORDER [None]
  - CARDIOVASCULAR DISORDER [None]
  - PANIC REACTION [None]
  - CONDITION AGGRAVATED [None]
  - CHRONIC OBSTRUCTIVE PULMONARY DISEASE [None]
  - ATRIAL FIBRILLATION [None]
  - DRUG ADMINISTRATION ERROR [None]
  - PULMONARY HYPERTENSION [None]
  - HYPERCAPNIA [None]
